FAERS Safety Report 20992123 (Version 1)
Quarter: 2022Q2

REPORT INFORMATION
  Report Type: Spontaneous
  Country: US (occurrence: US)
  Receive Date: 20220622
  Receipt Date: 20220622
  Transmission Date: 20220721
  Serious: No
  Sender: FDA-Public Use
  Company Number: US-Accord-225552

PATIENT
  Age: 40 Year
  Sex: Male
  Weight: 100.70 kg

DRUGS (1)
  1. CLONAZEPAM [Suspect]
     Active Substance: CLONAZEPAM
     Indication: Product used for unknown indication

REACTIONS (4)
  - Product solubility abnormal [Unknown]
  - Product formulation issue [Unknown]
  - Product substitution issue [Unknown]
  - Drug ineffective [Unknown]
